FAERS Safety Report 18480798 (Version 4)
Quarter: 2020Q4

REPORT INFORMATION
  Report Type: Spontaneous
  Country: US (occurrence: US)
  Receive Date: 20201109
  Receipt Date: 20201130
  Transmission Date: 20210114
  Serious: No
  Sender: FDA-Public Use
  Company Number: US-PFIZER INC-2020431328

PATIENT
  Age: 80 Year
  Sex: Female
  Weight: 45.81 kg

DRUGS (1)
  1. IBRANCE [Suspect]
     Active Substance: PALBOCICLIB
     Indication: NEOPLASM MALIGNANT
     Dosage: 100 MG, CYCLIC (ONCE A DAY BY MOUTH FOR 21 DAYS, THEN 1 WEEK OFF)
     Route: 048

REACTIONS (17)
  - Tooth loss [Unknown]
  - Toothache [Unknown]
  - Nervousness [Unknown]
  - Breast discomfort [Unknown]
  - Hypoaesthesia [Unknown]
  - Pain [Unknown]
  - Dizziness [Unknown]
  - Abdominal pain upper [Unknown]
  - Decreased appetite [Unknown]
  - Inappropriate schedule of product administration [Unknown]
  - Abdominal pain [Unknown]
  - Feeding disorder [Unknown]
  - Somnolence [Unknown]
  - Weight decreased [Unknown]
  - Cerebral disorder [Unknown]
  - Dental caries [Unknown]
  - Inflammation [Unknown]
